FAERS Safety Report 13458907 (Version 1)
Quarter: 2017Q2

REPORT INFORMATION
  Report Type: Report from Study
  Country: US (occurrence: US)
  Receive Date: 20170419
  Receipt Date: 20170419
  Transmission Date: 20170830
  Serious: Yes (Hospitalization)
  Sender: FDA-Public Use
  Company Number: US-BIOGEN-2008BI007194

PATIENT
  Age: 36 Year
  Sex: Female
  Weight: 47.67 kg

DRUGS (8)
  1. YASMIN [Concomitant]
     Active Substance: DROSPIRENONE\ETHINYL ESTRADIOL
     Indication: CONTRACEPTION
     Route: 048
     Dates: start: 20030530
  2. RHINOCORT AQUA [Concomitant]
     Active Substance: BUDESONIDE
     Indication: RHINITIS
     Route: 045
     Dates: start: 200411
  3. TYSABRI [Suspect]
     Active Substance: NATALIZUMAB
     Indication: MULTIPLE SCLEROSIS
     Route: 042
     Dates: start: 20070302, end: 20080303
  4. SANCTURA [Concomitant]
     Active Substance: TROSPIUM CHLORIDE
     Indication: NEUROGENIC BLADDER
     Route: 048
     Dates: start: 200712
  5. PROVIGIL [Concomitant]
     Active Substance: MODAFINIL
     Indication: FATIGUE
     Route: 048
     Dates: start: 200110
  6. SONATA [Concomitant]
     Active Substance: ZALEPLON
     Indication: INSOMNIA
     Route: 048
     Dates: start: 2000
  7. TRILEPTAL [Concomitant]
     Active Substance: OXCARBAZEPINE
     Indication: MUSCLE SPASTICITY
     Route: 048
     Dates: start: 20050402
  8. VITAMIN B12 [Concomitant]
     Active Substance: CYANOCOBALAMIN
     Indication: SUPPLEMENTATION THERAPY
     Route: 030
     Dates: start: 2000

REACTIONS (1)
  - Cervical dysplasia [Recovered/Resolved]

NARRATIVE: CASE EVENT DATE: 20080124
